FAERS Safety Report 22945028 (Version 3)
Quarter: 2025Q1

REPORT INFORMATION
  Report Type: Spontaneous
  Country: CA (occurrence: CA)
  Receive Date: 20230914
  Receipt Date: 20250217
  Transmission Date: 20250409
  Serious: Yes (Other)
  Sender: NOVARTIS
  Company Number: CA-002147023-NVSC2023CA173573

PATIENT
  Age: 5 Year
  Sex: Female

DRUGS (6)
  1. ZOLEDRONIC ACID [Suspect]
     Active Substance: ZOLEDRONIC ACID
     Indication: Calcinosis
     Dosage: 0.025 MG/KG, Q3MO
     Route: 042
  2. ZOLEDRONIC ACID [Suspect]
     Active Substance: ZOLEDRONIC ACID
     Dosage: 16 MG/KG, QD (8 MG/KG/DAY DIVIDED TWICE DAILY)
     Route: 042
  3. ZOLEDRONIC ACID [Suspect]
     Active Substance: ZOLEDRONIC ACID
     Dosage: 250 MG, BID
     Route: 065
  4. ZOLEDRONIC ACID [Suspect]
     Active Substance: ZOLEDRONIC ACID
     Route: 042
  5. SEVELAMER [Suspect]
     Active Substance: SEVELAMER
     Indication: Calcinosis
     Route: 065
  6. PROBENECID [Suspect]
     Active Substance: PROBENECID
     Indication: Neoplasm
     Dosage: 500 MG AM AND 250 MG PM
     Route: 065

REACTIONS (4)
  - Calcinosis [Unknown]
  - Neoplasm progression [Recovered/Resolved]
  - Drug ineffective for unapproved indication [Recovered/Resolved]
  - Product use in unapproved indication [Unknown]
